FAERS Safety Report 7772229-6 (Version None)
Quarter: 2011Q3

REPORT INFORMATION
  Report Type: 
  Country: None (occurrence: None)
  Receive Date: 20110922
  Receipt Date: 20110113
  Transmission Date: 20111222
  Serious: No
  Sender: FDA-Public Use
  Company Number: US-ASTRAZENECA-2011SE02492

PATIENT
  Age: 12012 Day
  Sex: Female

DRUGS (7)
  1. SULFAMETHOXAZOLE AND TRIMETHOPRIM DOUBLE STRENGTH [Concomitant]
     Dates: start: 20030903
  2. PHENAZOPYRIDINE HCL TAB [Concomitant]
     Dates: start: 20030903
  3. AVIANE-28 [Concomitant]
     Route: 048
     Dates: start: 20040811
  4. FERROUS SULFATE TAB [Concomitant]
     Dates: start: 20040811
  5. SEROQUEL [Suspect]
     Route: 048
     Dates: start: 20040614
  6. CELEXA [Concomitant]
     Dates: start: 20030102
  7. BENZTROPINE MESYLATE [Concomitant]
     Dates: start: 20030102

REACTIONS (3)
  - TYPE 2 DIABETES MELLITUS [None]
  - MENTAL DISORDER [None]
  - HYPERGLYCAEMIA [None]
